FAERS Safety Report 4606707-5 (Version None)
Quarter: 2005Q1

REPORT INFORMATION
  Report Type: 
  Country: None (occurrence: None)
  Receive Date: 20050311
  Receipt Date: 20050302
  Transmission Date: 20050727
  Serious: Yes (Hospitalization)
  Sender: FDA-Public Use
  Company Number: 2005039769

PATIENT
  Age: 3 Week
  Sex: Male
  Weight: 3.6288 kg

DRUGS (2)
  1. INFANT'S PEDIACARE DECONGESTANT AND COUGH DROPS (PSEUDOEPEDRINE, DEXTR [Suspect]
     Indication: COUGH
     Dosage: 0.4 ML 3-4 TMES, ORAL
     Route: 048
     Dates: start: 20050209, end: 20050211
  2. SODIUM CHLORIDE (SOIDUM CHLORIDE) [Concomitant]

REACTIONS (2)
  - CARDIAC DISORDER [None]
  - CYANOSIS [None]
